FAERS Safety Report 17825542 (Version 1)
Quarter: 2020Q2

REPORT INFORMATION
  Report Type: Spontaneous
  Country: PL (occurrence: PL)
  Receive Date: 20200526
  Receipt Date: 20200526
  Transmission Date: 20200714
  Serious: Yes (Other)
  Sender: FDA-Public Use
  Company Number: PL-PFIZER INC-2020202620

PATIENT
  Age: 39 Year
  Sex: Male
  Weight: 91 kg

DRUGS (3)
  1. CEFTRIAXONE SODIUM. [Suspect]
     Active Substance: CEFTRIAXONE SODIUM
     Indication: ENCEPHALITIS
     Dosage: 2 G, 1X/DAY
     Route: 042
     Dates: start: 20170118, end: 20170203
  2. DEPAKINE CHRONO [Suspect]
     Active Substance: VALPROATE SODIUM
     Indication: ENCEPHALITIS
     Dosage: 500 MG, 2X/DAY
     Route: 048
     Dates: start: 20170125, end: 20170207
  3. CEFTRIAXONE SODIUM. [Suspect]
     Active Substance: CEFTRIAXONE SODIUM
     Indication: SYPHILIS

REACTIONS (2)
  - Liver injury [Recovered/Resolved]
  - Rash [Recovered/Resolved]

NARRATIVE: CASE EVENT DATE: 20170203
